FAERS Safety Report 9790533 (Version 2)
Quarter: 2014Q1

REPORT INFORMATION
  Report Type: Spontaneous
  Country: JP (occurrence: JP)
  Receive Date: 20131231
  Receipt Date: 20140218
  Transmission Date: 20141002
  Serious: Yes (Other)
  Sender: FDA-Public Use
  Company Number: JP-PFIZER INC-2013371547

PATIENT
  Age: 78 Year
  Sex: Female
  Weight: 45 kg

DRUGS (60)
  1. IRINOTECAN HCL [Suspect]
     Indication: COLON CANCER
     Dosage: 200 MG, 1X/DAY
     Route: 041
     Dates: start: 20130220, end: 20130220
  2. IRINOTECAN HCL [Suspect]
     Dosage: 200 MG, 1X/DAY
     Route: 041
     Dates: start: 20130306, end: 20130306
  3. IRINOTECAN HCL [Suspect]
     Dosage: 200 MG, 1X/DAY
     Route: 041
     Dates: start: 20130322, end: 20130322
  4. IRINOTECAN HCL [Suspect]
     Dosage: 200 MG, 1X/DAY
     Route: 041
     Dates: start: 20130410, end: 20130410
  5. IRINOTECAN HCL [Suspect]
     Dosage: 200 MG, 1X/DAY
     Route: 041
     Dates: start: 20130703, end: 20130703
  6. IRINOTECAN HCL [Suspect]
     Dosage: 200 MG, 1X/DAY
     Route: 041
     Dates: start: 20130807, end: 20130807
  7. IRINOTECAN HCL [Suspect]
     Dosage: 200 MG, 1X/DAY
     Route: 041
     Dates: start: 20130821, end: 20130821
  8. IRINOTECAN HCL [Suspect]
     Dosage: 200 MG, 1X/DAY
     Route: 041
     Dates: start: 20130904, end: 20130904
  9. IRINOTECAN HCL [Suspect]
     Dosage: 200 MG, 1X/DAY
     Route: 041
     Dates: start: 20130918, end: 20130918
  10. IRINOTECAN HCL [Suspect]
     Dosage: 200 MG, 1X/DAY
     Route: 041
     Dates: start: 20131002, end: 20131002
  11. IRINOTECAN HCL [Suspect]
     Dosage: 200 MG, 1X/DAY
     Route: 041
     Dates: start: 20131016, end: 20131016
  12. IRINOTECAN HCL [Suspect]
     Dosage: 200 MG, 1X/DAY
     Route: 041
     Dates: start: 20131030, end: 20131030
  13. IRINOTECAN HCL [Suspect]
     Dosage: 200 MG, 1X/DAY
     Route: 041
     Dates: start: 20131113, end: 20131113
  14. IRINOTECAN HCL [Suspect]
     Dosage: 200 MG, 1X/DAY
     Route: 041
     Dates: start: 20131127, end: 20131127
  15. 5-FU [Suspect]
     Indication: COLON CANCER
     Dosage: 500 MG, 1X/DAY
     Route: 040
     Dates: start: 20130220, end: 20130220
  16. 5-FU [Suspect]
     Dosage: 3250 MG, ONCE IN 2 DAYS
     Route: 041
     Dates: start: 20130220, end: 20130220
  17. 5-FU [Suspect]
     Dosage: 500 MG, 1X/DAY
     Route: 040
     Dates: start: 20130306, end: 20130306
  18. 5-FU [Suspect]
     Dosage: 3250 MG, ONCE IN 2 DAYS
     Route: 041
     Dates: start: 20130306, end: 20130306
  19. 5-FU [Suspect]
     Dosage: 500 MG, 1X/DAY
     Route: 040
     Dates: start: 20130322, end: 20130322
  20. 5-FU [Suspect]
     Dosage: 3250 MG, ONCE IN 2 DAYS
     Route: 041
     Dates: start: 20130322, end: 20130322
  21. 5-FU [Suspect]
     Dosage: 500 MG, 1X/DAY
     Route: 040
     Dates: start: 20130410, end: 20130410
  22. 5-FU [Suspect]
     Dosage: 3250 MG, ONCE IN 2 DAYS
     Route: 041
     Dates: start: 20130410, end: 20130410
  23. 5-FU [Suspect]
     Dosage: 500 MG, 1X/DAY
     Route: 040
     Dates: start: 20130703, end: 20130703
  24. 5-FU [Suspect]
     Dosage: 3250 MG, ONCE IN 2 DAYS
     Route: 041
     Dates: start: 20130703, end: 20130703
  25. 5-FU [Suspect]
     Dosage: 500 MG, 1X/DAY
     Route: 040
     Dates: start: 20130807, end: 20130807
  26. 5-FU [Suspect]
     Dosage: 3250 MG, ONCE IN 2 DAYS
     Route: 041
     Dates: start: 20130807, end: 20130807
  27. 5-FU [Suspect]
     Dosage: 500 MG, 1X/DAY
     Route: 040
     Dates: start: 20130821, end: 20130821
  28. 5-FU [Suspect]
     Dosage: 3250 MG, ONCE IN 2 DAYS
     Route: 041
     Dates: start: 20130821, end: 20130821
  29. 5-FU [Suspect]
     Dosage: 500 MG, 1X/DAY
     Route: 040
     Dates: start: 20130904, end: 20130904
  30. 5-FU [Suspect]
     Dosage: 3250 MG, ONCE IN 2 DAYS
     Route: 041
     Dates: start: 20130904, end: 20130904
  31. 5-FU [Suspect]
     Dosage: 500 MG, 1X/DAY
     Route: 040
     Dates: start: 20130918, end: 20130918
  32. 5-FU [Suspect]
     Dosage: 3250 MG, ONCE IN 2 DAYS
     Route: 041
     Dates: start: 20130918, end: 20130918
  33. 5-FU [Suspect]
     Dosage: 500 MG, 1X/DAY
     Route: 040
     Dates: start: 20131002, end: 20131002
  34. 5-FU [Suspect]
     Dosage: 3250 MG, ONCE IN 2 DAYS
     Route: 041
     Dates: start: 20131002, end: 20131002
  35. 5-FU [Suspect]
     Dosage: 500 MG, 1X/DAY
     Route: 040
     Dates: start: 20131016, end: 20131016
  36. 5-FU [Suspect]
     Dosage: 3250 MG, ONCE IN 2 DAYS
     Route: 041
     Dates: start: 20131016, end: 20131016
  37. 5-FU [Suspect]
     Dosage: 500 MG, 1X/DAY
     Route: 040
     Dates: start: 20131030, end: 20131030
  38. 5-FU [Suspect]
     Dosage: 3250 MG, ONCE IN 2 DAYS
     Route: 041
     Dates: start: 20131030, end: 20131030
  39. 5-FU [Suspect]
     Dosage: 500 MG, 1X/DAY
     Route: 040
     Dates: start: 20131113, end: 20131113
  40. 5-FU [Suspect]
     Dosage: 3250 MG, ONCE IN 2 DAYS
     Route: 041
     Dates: start: 20131113, end: 20131113
  41. 5-FU [Suspect]
     Dosage: 500 MG, 1X/DAY
     Route: 040
     Dates: start: 20131127, end: 20131127
  42. 5-FU [Suspect]
     Dosage: 3250 MG, ONCE IN 2 DAYS
     Route: 041
     Dates: start: 20131127, end: 20131127
  43. LEVOLEUCOVORIN CALCIUM [Suspect]
     Indication: COLON CANCER
     Dosage: 295 MG, 1X/DAY
     Route: 041
     Dates: start: 20130220, end: 20130220
  44. LEVOLEUCOVORIN CALCIUM [Suspect]
     Dosage: 295 MG, 1X/DAY
     Route: 041
     Dates: start: 20130306, end: 20130306
  45. LEVOLEUCOVORIN CALCIUM [Suspect]
     Dosage: 295 MG, 1X/DAY
     Route: 041
     Dates: start: 20130322, end: 20130322
  46. LEVOLEUCOVORIN CALCIUM [Suspect]
     Dosage: 295 MG, 1X/DAY
     Route: 041
     Dates: start: 20130410, end: 20130410
  47. LEVOLEUCOVORIN CALCIUM [Suspect]
     Dosage: 295 MG, 1X/DAY
     Route: 041
     Dates: start: 20130703, end: 20130703
  48. LEVOLEUCOVORIN CALCIUM [Suspect]
     Dosage: 295 MG, 1X/DAY
     Route: 041
     Dates: start: 20130807, end: 20130807
  49. LEVOLEUCOVORIN CALCIUM [Suspect]
     Dosage: 295 MG, 1X/DAY
     Route: 041
     Dates: start: 20130821, end: 20130821
  50. LEVOLEUCOVORIN CALCIUM [Suspect]
     Dosage: 295 MG, 1X/DAY
     Route: 041
     Dates: start: 20130904, end: 20130904
  51. LEVOLEUCOVORIN CALCIUM [Suspect]
     Dosage: 295 MG, 1X/DAY
     Route: 041
     Dates: start: 20130918, end: 20130918
  52. LEVOLEUCOVORIN CALCIUM [Suspect]
     Dosage: 295 MG, 1X/DAY
     Route: 041
     Dates: start: 20131002, end: 20131002
  53. LEVOLEUCOVORIN CALCIUM [Suspect]
     Dosage: 295 MG, 1X/DAY
     Route: 041
     Dates: start: 20131016, end: 20131016
  54. LEVOLEUCOVORIN CALCIUM [Suspect]
     Dosage: 295 MG, 1X/DAY
     Route: 041
     Dates: start: 20131030, end: 20131030
  55. LEVOLEUCOVORIN CALCIUM [Suspect]
     Dosage: 295 MG, 1X/DAY
     Route: 041
     Dates: start: 20131113, end: 20131113
  56. LEVOLEUCOVORIN CALCIUM [Suspect]
     Dosage: 295 MG, 1X/DAY
     Route: 041
     Dates: start: 20131127, end: 20131127
  57. ADALAT CR [Concomitant]
     Dosage: UNK
  58. AMARYL [Concomitant]
     Dosage: UNK
  59. METHYLPREDNISOLONE SODIUM SUCCINATE [Concomitant]
     Dosage: UNK
     Dates: start: 20131206, end: 20131208
  60. PREDONINE [Concomitant]
     Dosage: UNK
     Dates: start: 20131209, end: 20140120

REACTIONS (4)
  - Interstitial lung disease [Recovering/Resolving]
  - Haemoglobin decreased [Recovered/Resolved]
  - Leukopenia [Recovered/Resolved]
  - Neutropenia [Recovered/Resolved]
